FAERS Safety Report 24635542 (Version 3)
Quarter: 2024Q4

REPORT INFORMATION
  Report Type: Spontaneous
  Country: CA (occurrence: CA)
  Receive Date: 20241119
  Receipt Date: 20241230
  Transmission Date: 20250115
  Serious: Yes (Hospitalization, Other)
  Sender: CELLTRION
  Company Number: CA-PFIZER INC-202400297202

PATIENT

DRUGS (4)
  1. INFLECTRA [Suspect]
     Active Substance: INFLIXIMAB-DYYB
     Indication: Crohn^s disease
     Dosage: 10 MG/KG INDUCTION WEEKS 0, 2, 6 MAINTENANCE Q 4 WEEKS
     Route: 042
     Dates: start: 20240718
  2. INFLECTRA [Suspect]
     Active Substance: INFLIXIMAB-DYYB
     Dosage: 10 MG/KG INDUCTION WEEKS 0, 2, 6 MAINTENANCE Q 4 WEEKS
     Route: 042
     Dates: start: 20241025
  3. INFLECTRA [Suspect]
     Active Substance: INFLIXIMAB-DYYB
     Dosage: 10 MG/KG REINDUCTION WEEKS 0, 2, 6 THAN 4 WEEKS (WEEK 0 REINDUCTION DOSE)
     Route: 042
     Dates: start: 20241107
  4. INFLECTRA [Suspect]
     Active Substance: INFLIXIMAB-DYYB
     Dosage: 660 MG AFTER 6 WEEKS (REINDUCTION WEEK 2), 10 MG/KG REINDUCTION WEEKS 0, 2, 6 THAN 4 WEEKS
     Route: 042
     Dates: start: 20241219

REACTIONS (9)
  - Vomiting [Unknown]
  - Inflammation [Unknown]
  - Nausea [Unknown]
  - Abdominal pain [Unknown]
  - Vomiting [Unknown]
  - Intestinal stenosis [Unknown]
  - Ankylosing spondylitis [Unknown]
  - Arthralgia [Not Recovered/Not Resolved]
  - Off label use [Unknown]

NARRATIVE: CASE EVENT DATE: 20240101
